FAERS Safety Report 19900323 (Version 1)
Quarter: 2021Q3

REPORT INFORMATION
  Report Type: Spontaneous
  Country: US (occurrence: US)
  Receive Date: 20210929
  Receipt Date: 20210929
  Transmission Date: 20211014
  Serious: Yes (Death)
  Sender: FDA-Public Use
  Company Number: US-RANDOBLABS-2021-US-021055

PATIENT
  Sex: Male

DRUGS (1)
  1. BALMEX DIAPER RASH [Suspect]
     Active Substance: ZINC OXIDE
     Indication: PRODUCT USED FOR UNKNOWN INDICATION
     Route: 048

REACTIONS (2)
  - Death [Fatal]
  - Accidental exposure to product [Not Recovered/Not Resolved]
